FAERS Safety Report 5278524-7 (Version None)
Quarter: 2007Q1

REPORT INFORMATION
  Report Type: 
  Country: None (occurrence: None)
  Receive Date: 20070322
  Receipt Date: 20070314
  Transmission Date: 20070707
  Serious: Yes (Hospitalization)
  Sender: FDA-Public Use
  Company Number: 2007-00700

PATIENT
  Age: 76 Year
  Sex: Male
  Weight: 90.7 kg

DRUGS (8)
  1. VELCADE [Suspect]
     Indication: MULTIPLE MYELOMA
     Dosage: 1.30 MG/M2, INTRAVENOUS
     Route: 042
     Dates: start: 20061215, end: 20070130
  2. DEXAMETHASONE TAB [Suspect]
     Indication: MULTIPLE MYELOMA
     Dosage: 40.00 MG, ORAL
     Route: 048
     Dates: start: 20061215
  3. AMIODARONE HCL [Concomitant]
  4. DIOVAN [Concomitant]
  5. CARDURA [Concomitant]
  6. INSULIN (INSULIN) [Concomitant]
  7. LASIX [Concomitant]
  8. PROCHLORPERAZINE MALEATE [Concomitant]

REACTIONS (13)
  - ASTHENIA [None]
  - BONE PAIN [None]
  - CENTRAL NERVOUS SYSTEM INFECTION [None]
  - CENTRAL NERVOUS SYSTEM VIRAL INFECTION [None]
  - CONFUSIONAL STATE [None]
  - CONVULSION [None]
  - CSF PROTEIN INCREASED [None]
  - DIZZINESS [None]
  - FUNGAL INFECTION [None]
  - HYPOTENSION [None]
  - OEDEMA PERIPHERAL [None]
  - ORTHOSTATIC HYPOTENSION [None]
  - PARKINSONISM [None]
